FAERS Safety Report 14984694 (Version 2)
Quarter: 2018Q3

REPORT INFORMATION
  Report Type: Spontaneous
  Country: US (occurrence: US)
  Receive Date: 20180607
  Receipt Date: 20180814
  Transmission Date: 20181010
  Serious: No
  Sender: FDA-Public Use
  Company Number: US-ALLERGAN-1829650US

PATIENT
  Sex: Female
  Weight: 61.22 kg

DRUGS (1)
  1. TAYTULLA [Suspect]
     Active Substance: ETHINYL ESTRADIOL\NORETHINDRONE ACETATE
     Indication: CONTRACEPTION
     Dosage: 1 DF, QD
     Route: 048
     Dates: start: 20180404, end: 20180524

REACTIONS (3)
  - Pregnancy [Unknown]
  - Product use issue [Unknown]
  - Drug ineffective [Unknown]
